FAERS Safety Report 10728925 (Version 1)
Quarter: 2015Q1

REPORT INFORMATION
  Report Type: Spontaneous
  Country: US (occurrence: None)
  Receive Date: 20150120
  Receipt Date: 20150120
  Transmission Date: 20150721
  Serious: Yes (Disabling, Other)
  Sender: FDA-Public Use
  Company Number: None

PATIENT
  Age: 85 Year
  Sex: Male

DRUGS (11)
  1. VITAMIN D [Concomitant]
     Active Substance: CHOLECALCIFEROL
  2. NAMENDA XR [Suspect]
     Active Substance: MEMANTINE HYDROCHLORIDE
     Indication: DEMENTIA
     Dates: start: 20141228, end: 20150116
  3. FOLIC ACID. [Concomitant]
     Active Substance: FOLIC ACID
  4. CELEXA [Concomitant]
     Active Substance: CITALOPRAM HYDROBROMIDE
  5. ALBUTEROL. [Concomitant]
     Active Substance: ALBUTEROL
  6. ASPRIN [Concomitant]
     Active Substance: ASPIRIN
  7. VITAMIN B12 [Concomitant]
     Active Substance: CYANOCOBALAMIN
  8. KEPPRA [Concomitant]
     Active Substance: LEVETIRACETAM
  9. BUSPAR [Concomitant]
     Active Substance: BUSPIRONE HYDROCHLORIDE
  10. XANAX [Concomitant]
     Active Substance: ALPRAZOLAM
  11. ARICEPT [Concomitant]
     Active Substance: DONEPEZIL HYDROCHLORIDE

REACTIONS (10)
  - Dyspnoea [None]
  - Malaise [None]
  - Confusional state [None]
  - Headache [None]
  - Product formulation issue [None]
  - Diarrhoea [None]
  - Asthenia [None]
  - Dehydration [None]
  - Abasia [None]
  - Agitation [None]

NARRATIVE: CASE EVENT DATE: 20150111
